FAERS Safety Report 26066252 (Version 1)
Quarter: 2025Q4

REPORT INFORMATION
  Report Type: Spontaneous
  Country: CN (occurrence: CN)
  Receive Date: 20251119
  Receipt Date: 20251119
  Transmission Date: 20260117
  Serious: Yes (Hospitalization)
  Sender: NOVO NORDISK
  Company Number: None

PATIENT
  Age: 39 Year
  Sex: Male

DRUGS (6)
  1. TRESIBA [Suspect]
     Active Substance: INSULIN DEGLUDEC
     Indication: Latent autoimmune diabetes in adults
     Dosage: 14 IU, QD (BEFORE BEDTIME)
     Route: 058
     Dates: start: 20210521, end: 202510
  2. TRESIBA [Suspect]
     Active Substance: INSULIN DEGLUDEC
     Dosage: 16 IU, QD
     Route: 058
     Dates: start: 202510
  3. NOVORAPID [Suspect]
     Active Substance: INSULIN ASPART
     Indication: Latent autoimmune diabetes in adults
     Dosage: 12 IU, TID
     Route: 058
     Dates: start: 20251029
  4. ACARBOSE [Concomitant]
     Active Substance: ACARBOSE
     Indication: Latent autoimmune diabetes in adults
     Dosage: 50 MG, QD
     Route: 048
     Dates: start: 20251103
  5. INSULIN LISPRO [Concomitant]
     Active Substance: INSULIN LISPRO
     Indication: Latent autoimmune diabetes in adults
     Dosage: 8 IU, TID (BEFORE 3 MEALS)
     Route: 058
  6. ROSUVASTATIN [Concomitant]
     Active Substance: ROSUVASTATIN
     Indication: Hyperlipidaemia
     Dosage: UNK

REACTIONS (3)
  - Eyelid oedema [Not Recovered/Not Resolved]
  - Refraction disorder [Unknown]
  - Diabetes mellitus inadequate control [Unknown]

NARRATIVE: CASE EVENT DATE: 20251001
